FAERS Safety Report 5198636-6 (Version None)
Quarter: 2007Q1

REPORT INFORMATION
  Report Type: 
  Country: None (occurrence: None)
  Receive Date: 20070104
  Receipt Date: 20061221
  Transmission Date: 20070707
  Serious: Yes (Death)
  Sender: FDA-Public Use
  Company Number: GSK1383

PATIENT
  Age: 73 Year
  Sex: Male

DRUGS (2)
  1. ACETAMINOPHEN [Suspect]
     Indication: DRUG USE FOR UNKNOWN INDICATION
     Route: 048
  2. UNSPECIFIED DRUG [Suspect]
     Route: 048

REACTIONS (6)
  - BUNDLE BRANCH BLOCK RIGHT [None]
  - CARDIAC ARREST [None]
  - HYPERKALAEMIA [None]
  - OVERDOSE [None]
  - RENAL IMPAIRMENT [None]
  - RESPIRATORY ARREST [None]
